FAERS Safety Report 21959229 (Version 1)
Quarter: 2023Q1

REPORT INFORMATION
  Report Type: Spontaneous
  Country: US (occurrence: None)
  Receive Date: 20230203
  Receipt Date: 20230203
  Transmission Date: 20230418
  Serious: No
  Sender: FDA-Public Use
  Company Number: None

PATIENT
  Age: 67 Year
  Sex: Female
  Weight: 97.52 kg

DRUGS (1)
  1. SKYRIZI [Suspect]
     Active Substance: RISANKIZUMAB-RZAA
     Indication: Psoriasis
     Dosage: INJECT 150MG SUBCUTANEOUSLY EVERY 12 WEEKS  AS DIRECTED.     ?
     Route: 058
     Dates: start: 202211

REACTIONS (3)
  - Bronchitis [None]
  - Pneumonia [None]
  - Respiratory syncytial virus infection [None]
